FAERS Safety Report 11397787 (Version 1)
Quarter: 2015Q3

REPORT INFORMATION
  Report Type: Spontaneous
  Country: FI (occurrence: FI)
  Receive Date: 20150819
  Receipt Date: 20150819
  Transmission Date: 20151125
  Serious: Yes (Hospitalization)
  Sender: FDA-Public Use
  Company Number: FI-HOSPIRA-2397798

PATIENT
  Age: 34 Year
  Sex: Female
  Weight: 74.2 kg

DRUGS (5)
  1. PARA-TABS [Concomitant]
     Active Substance: ACETAMINOPHEN
     Indication: PAIN IN EXTREMITY
     Dosage: IN THE MORNING AND IN THE AFTERNON AT 13:49
     Route: 048
     Dates: start: 20140606
  2. ZOFRAN [Concomitant]
     Active Substance: ONDANSETRON HYDROCHLORIDE
     Indication: PREMEDICATION
     Route: 048
     Dates: start: 20140606
  3. OXALIPLATIN HOSPIRA [Suspect]
     Active Substance: OXALIPLATIN
     Indication: OVARIAN CANCER
     Route: 041
     Dates: start: 20140606, end: 20140606
  4. IVEMEND [Concomitant]
     Active Substance: FOSAPREPITANT DIMEGLUMINE
     Indication: PREMEDICATION
     Route: 042
     Dates: start: 20140606
  5. ORADEXON                           /00016001/ [Concomitant]
     Indication: PREMEDICATION
     Route: 042
     Dates: start: 20140606

REACTIONS (6)
  - Hyperventilation [Recovered/Resolved]
  - Paraesthesia [Recovered/Resolved]
  - Suffocation feeling [Recovered/Resolved]
  - Dysphagia [Recovered/Resolved]
  - Infusion site pain [Recovered/Resolved]
  - Asthenia [Recovered/Resolved]
